FAERS Safety Report 7896920-6 (Version None)
Quarter: 2011Q4

REPORT INFORMATION
  Report Type: 
  Country: None (occurrence: None)
  Receive Date: 20111107
  Receipt Date: 20111031
  Transmission Date: 20120403
  Serious: Yes (Other)
  Sender: FDA-Public Use
  Company Number: US-BAYER-2011-083684

PATIENT
  Sex: Male

DRUGS (1)
  1. NEXAVAR [Suspect]
     Indication: PRODUCT USED FOR UNKNOWN INDICATION
     Dosage: UNK UNK, BID
     Dates: start: 20110101

REACTIONS (6)
  - DYSURIA [None]
  - APHAGIA [None]
  - VOMITING [None]
  - ADVERSE EVENT [None]
  - PAIN IN EXTREMITY [None]
  - TESTICULAR PAIN [None]
